FAERS Safety Report 8613437-1 (Version None)
Quarter: 2012Q3

REPORT INFORMATION
  Report Type: 
  Country: None (occurrence: None)
  Receive Date: 20120822
  Receipt Date: 20120816
  Transmission Date: 20120928
  Serious: Yes (Death)
  Sender: FDA-Public Use
  Company Number: US-MYLANLABS-2011S1021926

PATIENT
  Age: 49 Year
  Sex: Female
  Weight: 77.11 kg

DRUGS (16)
  1. MIRALAX /00754501/ [Concomitant]
  2. MULTI-VITAMIN [Concomitant]
  3. LEXAPRO [Concomitant]
     Route: 048
  4. TIZANIDINE HYDROCHLORIDE [Concomitant]
     Dosage: 2MG TABS TAKE 1 + 1/2 TID AND (3) HS
  5. MAGNESIUM OXIDE [Concomitant]
  6. NEURONTIN [Concomitant]
  7. COPAXONE [Concomitant]
  8. CLONAZEPAM [Concomitant]
  9. ASCORBIC ACID [Concomitant]
  10. FENTANYL-100 [Suspect]
     Indication: PAIN
     Dosage: CHANGE Q3D
     Route: 062
     Dates: end: 20100312
  11. NUVIGIL [Concomitant]
  12. VITAMIN E [Concomitant]
  13. OXYCODONE HCL [Concomitant]
     Dosage: 1 - 1.5 PRN
  14. TIMOLOL MALEATE [Concomitant]
     Route: 047
  15. TRAVATAN [Concomitant]
     Route: 047
  16. ATACAND [Concomitant]

REACTIONS (2)
  - TOXICITY TO VARIOUS AGENTS [None]
  - OVERDOSE [None]
